FAERS Safety Report 24018106 (Version 2)
Quarter: 2024Q3

REPORT INFORMATION
  Report Type: Spontaneous
  Country: US (occurrence: US)
  Receive Date: 20240627
  Receipt Date: 20240801
  Transmission Date: 20241017
  Serious: No
  Sender: ABBVIE
  Company Number: US-ABBVIE-5814049

PATIENT
  Age: 67 Year
  Sex: Female
  Weight: 64.41 kg

DRUGS (2)
  1. LATISSE [Suspect]
     Active Substance: BIMATOPROST
     Indication: Growth of eyelashes
     Dosage: 0.3MG/ML, 1 DROP PER EYE LID, BEFORE BED, DOSE FORM- LIQUID
     Route: 047
     Dates: start: 20240417, end: 202406
  2. LATISSE [Suspect]
     Active Substance: BIMATOPROST
     Dosage: 0.3MG/ML, 1 DROP PER EYE LID, BEFORE BED, DOSE FORM- LIQUID
     Route: 047

REACTIONS (1)
  - Madarosis [Unknown]

NARRATIVE: CASE EVENT DATE: 20240401
